FAERS Safety Report 16982162 (Version 1)
Quarter: 2019Q4

REPORT INFORMATION
  Report Type: Spontaneous
  Country: FR (occurrence: FR)
  Receive Date: 20191101
  Receipt Date: 20191101
  Transmission Date: 20200122
  Serious: Yes (Hospitalization)
  Sender: FDA-Public Use
  Company Number: FR-TEVA-2019-FR-1130357

PATIENT
  Age: 79 Year
  Sex: Female
  Weight: 52 kg

DRUGS (15)
  1. ESIDREX [Suspect]
     Active Substance: HYDROCHLOROTHIAZIDE
     Indication: HYPERTENSION
     Dosage: 0.5 DOSAGE FORMS
     Route: 048
     Dates: end: 20190418
  2. FOSINOPRIL [Suspect]
     Active Substance: FOSINOPRIL
     Indication: HYPERTENSION
     Dosage: 20 MG
     Route: 048
     Dates: end: 20190418
  3. PARACETAMOL [Concomitant]
     Active Substance: ACETAMINOPHEN
  4. PANTOPRAZOLE [Concomitant]
     Active Substance: PANTOPRAZOLE
  5. DICLOFENAC [Concomitant]
     Active Substance: DICLOFENAC
  6. ATORVASTATINE [Concomitant]
     Active Substance: ATORVASTATIN
  7. LERCANIDIPINE (CHLORHYDRATE DE) [Concomitant]
     Active Substance: LERCANIDIPINE HYDROCHLORIDE
  8. CHOLECALCIFEROL [Concomitant]
     Active Substance: CHOLECALCIFEROL
  9. EZETIMIBE. [Concomitant]
     Active Substance: EZETIMIBE
  10. CODEINE [Concomitant]
     Active Substance: CODEINE
  11. MOXONIDINE [Concomitant]
     Active Substance: MOXONIDINE
  12. HYDROCHLOROTHIAZIDE. [Suspect]
     Active Substance: HYDROCHLOROTHIAZIDE
     Indication: HYPERTENSION
     Dosage: 12.5 MG
     Route: 048
     Dates: end: 20190418
  13. KARDEGIC [Concomitant]
     Active Substance: ASPIRIN DL-LYSINE
  14. ATENOLOL ARROW 100 MG, COMPRIME PELLICULE SECABLE [Concomitant]
  15. CALCIUM (CARBONATE DE) [Concomitant]
     Active Substance: CALCIUM CARBONATE

REACTIONS (2)
  - Hypokalaemia [Recovered/Resolved]
  - Acute kidney injury [Recovered/Resolved]

NARRATIVE: CASE EVENT DATE: 20190418
